FAERS Safety Report 4395177-0 (Version None)
Quarter: 2004Q3

REPORT INFORMATION
  Report Type: 
  Country: None (occurrence: None)
  Receive Date: 20040706
  Receipt Date: 20040625
  Transmission Date: 20050211
  Serious: Yes (Other)
  Sender: FDA-Public Use
  Company Number: 207410

PATIENT
  Age: 13 Year
  Sex: Female
  Weight: 39 kg

DRUGS (5)
  1. NUTROPIN AQ [Suspect]
     Indication: CENTRAL NERVOUS SYSTEM NEOPLASM
     Dosage: 1.8 MG, 6/WEEK, SUBCUTANEOUS
     Route: 058
     Dates: start: 20010924, end: 20040422
  2. SYNTHROID [Concomitant]
  3. CORTEF [Concomitant]
  4. MAGNESIUM SULFATE [Concomitant]
  5. LUPRON [Concomitant]

REACTIONS (1)
  - LIP AND/OR ORAL CAVITY CANCER STAGE I [None]
